FAERS Safety Report 10213026 (Version 1)
Quarter: 2014Q2

REPORT INFORMATION
  Report Type: Spontaneous
  Country: SI (occurrence: SI)
  Receive Date: 20140603
  Receipt Date: 20140603
  Transmission Date: 20141212
  Serious: Yes (Disabling, Other)
  Sender: FDA-Public Use
  Company Number: SI-AMGEN-SVNSP2014040661

PATIENT
  Age: 61 Year
  Sex: Female
  Weight: 80 kg

DRUGS (7)
  1. ENBREL [Suspect]
     Indication: RHEUMATOID ARTHRITIS
     Dosage: 50 MG, WEEKLY
     Route: 058
     Dates: start: 20140225, end: 20140324
  2. METHOTREXAT                        /00113801/ [Suspect]
     Indication: RHEUMATOID ARTHRITIS
     Dosage: 20 MG, WEEKLY
     Route: 065
  3. METHYLPREDNISOLONE [Suspect]
     Indication: RHEUMATOID ARTHRITIS
     Dosage: 4 MG, 1X/DAY
     Route: 065
  4. CONTROLOC                          /01263201/ [Concomitant]
     Dosage: 40 MG, 1X/DAY
  5. MICARDIS [Concomitant]
     Dosage: 40 MG, 1X/DAY
  6. ALFACALCIDOL [Concomitant]
     Dosage: 1 UG, 1X/DAY
  7. CALCIUM CARBONATE [Concomitant]
     Dosage: 1 G, 1X/DAY

REACTIONS (1)
  - Vitreous detachment [Not Recovered/Not Resolved]
